FAERS Safety Report 6291614-5 (Version None)
Quarter: 2009Q3

REPORT INFORMATION
  Report Type: 
  Country: None (occurrence: None)
  Receive Date: 20090730
  Receipt Date: 20090723
  Transmission Date: 20100115
  Serious: Yes (Hospitalization)
  Sender: FDA-Public Use
  Company Number: AU-ASTRAZENECA-2009SE05658

PATIENT
  Age: 29150 Day
  Sex: Female

DRUGS (6)
  1. ATATCAND [Suspect]
     Route: 048
     Dates: end: 20080705
  2. PHYSIOTENS [Suspect]
     Dates: end: 20080705
  3. ALDACTONE [Concomitant]
  4. ASPIRIN [Concomitant]
  5. PROPRANOLOL [Concomitant]
  6. ZANIDIP [Concomitant]

REACTIONS (3)
  - CHEST DISCOMFORT [None]
  - DYSPHAGIA [None]
  - SWOLLEN TONGUE [None]
